FAERS Safety Report 4799905-1 (Version None)
Quarter: 2005Q4

REPORT INFORMATION
  Report Type: 
  Country: None (occurrence: None)
  Receive Date: 20051017
  Receipt Date: 20051007
  Transmission Date: 20060501
  Serious: Yes (Hospitalization)
  Sender: FDA-Public Use
  Company Number: PHNU2005DE03382

PATIENT
  Sex: Male

DRUGS (2)
  1. AREDIA [Suspect]
     Indication: PLASMACYTOMA
     Dosage: 90 MG, QMO
     Route: 042
     Dates: start: 20020601, end: 20040507
  2. ZOMETA [Suspect]
     Indication: PLASMACYTOMA
     Dosage: 4 MG, UNK
     Route: 042
     Dates: start: 20040701, end: 20050729

REACTIONS (4)
  - BONE DISORDER [None]
  - OSTEOMYELITIS [None]
  - OSTEONECROSIS [None]
  - TOOTH EXTRACTION [None]
